FAERS Safety Report 6077054-2 (Version None)
Quarter: 2009Q1

REPORT INFORMATION
  Report Type: 
  Country: None (occurrence: None)
  Receive Date: 20090213
  Receipt Date: 20090205
  Transmission Date: 20090719
  Serious: Yes (Hospitalization, Other)
  Sender: FDA-Public Use
  Company Number: US-JNJFOC-20090202828

PATIENT
  Age: 35 Year
  Sex: Male
  Weight: 72.58 kg

DRUGS (4)
  1. REMICADE [Suspect]
     Route: 042
  2. REMICADE [Suspect]
     Indication: CROHN'S DISEASE
     Dosage: 2 INFUSIONS ON UNKNOWN DATES
     Route: 042
  3. PENTASA [Concomitant]
  4. PURINETHOL [Concomitant]

REACTIONS (2)
  - HISTOPLASMOSIS [None]
  - PNEUMONIA [None]
